FAERS Safety Report 8040844-0 (Version None)
Quarter: 2012Q1

REPORT INFORMATION
  Report Type: 
  Country: None (occurrence: None)
  Receive Date: 20120112
  Receipt Date: 20120105
  Transmission Date: 20120608
  Serious: Yes (Hospitalization)
  Sender: FDA-Public Use
  Company Number: US-BIOGENIDEC-2011BI045456

PATIENT
  Age: 51 Year
  Sex: Female
  Weight: 57 kg

DRUGS (11)
  1. MOTRIN [Concomitant]
     Route: 048
  2. TYSABRI [Suspect]
     Indication: MULTIPLE SCLEROSIS
     Route: 042
     Dates: start: 20080520
  3. ATIVAN [Concomitant]
     Route: 048
  4. AMBIEN [Concomitant]
     Indication: INSOMNIA
     Route: 048
  5. BENADRYL [Concomitant]
     Route: 048
  6. NEURONTIN [Concomitant]
     Route: 048
  7. MOTRIN [Concomitant]
     Indication: PAIN
     Route: 048
  8. BUPROPION HYDROCHLORIDE [Concomitant]
     Route: 048
  9. OMEPRAZOLE [Concomitant]
     Route: 048
  10. ATIVAN [Concomitant]
     Indication: ANXIETY
     Route: 048
  11. LORTAB [Concomitant]
     Indication: PAIN
     Route: 048

REACTIONS (2)
  - PNEUMONIA [None]
  - SEPSIS [None]
